FAERS Safety Report 10120398 (Version 2)
Quarter: 2014Q2

REPORT INFORMATION
  Report Type: Spontaneous
  Country: US (occurrence: US)
  Receive Date: 20140425
  Receipt Date: 20140515
  Transmission Date: 20141212
  Serious: No
  Sender: FDA-Public Use
  Company Number: US-PFIZER INC-2014114385

PATIENT
  Age: 45 Year
  Sex: Female

DRUGS (5)
  1. CELEBREX [Suspect]
     Dosage: 200 MG, 1X/DAY
     Route: 048
     Dates: start: 20130221, end: 20130606
  2. LISINOPRIL [Suspect]
     Dosage: UNK
  3. NAPROXEN SODIUM [Suspect]
     Dosage: 500 MG, 1 BID AS NEEDED
     Dates: start: 20111014, end: 20130606
  4. ULTRAN [Suspect]
     Dosage: UNK
  5. BUSPAR [Suspect]
     Dosage: UNK

REACTIONS (2)
  - Drug hypersensitivity [Unknown]
  - Rash [Recovered/Resolved]
